FAERS Safety Report 11340148 (Version 1)
Quarter: 2015Q3

REPORT INFORMATION
  Report Type: Spontaneous
  Country: US (occurrence: None)
  Receive Date: 20150629
  Receipt Date: 20150629
  Transmission Date: 20151125
  Serious: No
  Sender: FDA-Public Use
  Company Number: A-US2014-105927

PATIENT
  Age: 57 Year
  Sex: Female

DRUGS (8)
  1. POTASSIUM CHLORIDE. [Concomitant]
     Active Substance: POTASSIUM CHLORIDE
  2. TORSEMIDE. [Concomitant]
     Active Substance: TORSEMIDE
  3. OPSUMIT [Suspect]
     Active Substance: MACITENTAN
     Indication: PULMONARY ARTERIAL HYPERTENSION
     Route: 048
     Dates: start: 20140328, end: 20141127
  4. AZATHIOPRINE. [Concomitant]
     Active Substance: AZATHIOPRINE
  5. METOPROLOL (METOPROLOL FUMARATE) [Concomitant]
  6. GABAPENTIN. [Concomitant]
     Active Substance: GABAPENTIN
  7. HYDROXYCHLOROQUINE (HYDROXYCHLOROQUINE SULFATE) [Concomitant]
  8. PREDNISONE (PREDNISONE ACETATE) [Concomitant]

REACTIONS (4)
  - Pulmonary arterial hypertension [None]
  - Condition aggravated [None]
  - Treatment noncompliance [None]
  - Dyspnoea [None]

NARRATIVE: CASE EVENT DATE: 201404
